FAERS Safety Report 5933761-0 (Version None)
Quarter: 2008Q4

REPORT INFORMATION
  Report Type: 
  Country: None (occurrence: None)
  Receive Date: 20081024
  Receipt Date: 20081016
  Transmission Date: 20090506
  Serious: Yes (Hospitalization)
  Sender: FDA-Public Use
  Company Number: 2008-03902

PATIENT
  Age: 63 Year
  Sex: Female
  Weight: 47 kg

DRUGS (9)
  1. VELCADE [Suspect]
     Indication: MULTIPLE MYELOMA
     Dosage: 1.6 MG/M2
     Dates: start: 20080711, end: 20081010
  2. CCI-779(TEMSIROLIMUS) INJECTION [Suspect]
     Indication: MULTIPLE MYELOMA
     Dosage: 25 MG
     Dates: start: 20080711, end: 20081010
  3. LOMOTIL [Concomitant]
  4. NEUROTON (CITICOLINE SODIUM) [Concomitant]
  5. PROTONIX [Concomitant]
  6. SIMVASTATIN [Concomitant]
  7. TOPROL-XL [Concomitant]
  8. VALTREX [Concomitant]
  9. ZOFRAN [Concomitant]

REACTIONS (3)
  - DEHYDRATION [None]
  - HYPOKALAEMIA [None]
  - PANCREATITIS [None]
